FAERS Safety Report 22145602 (Version 1)
Quarter: 2023Q1

REPORT INFORMATION
  Report Type: Spontaneous
  Country: FR (occurrence: FR)
  Receive Date: 20230328
  Receipt Date: 20230328
  Transmission Date: 20230417
  Serious: Yes (Other)
  Sender: FDA-Public Use
  Company Number: FR-BIOVITRUM-2023-FR-006585

PATIENT
  Age: 65 Year
  Sex: Female

DRUGS (1)
  1. CYCLOSPORINE [Suspect]
     Active Substance: CYCLOSPORINE
     Indication: Bone marrow failure
     Dosage: UNK
     Route: 065

REACTIONS (2)
  - End stage renal disease [Unknown]
  - Bone marrow failure [Unknown]
